FAERS Safety Report 23943731 (Version 1)
Quarter: 2024Q2

REPORT INFORMATION
  Report Type: Spontaneous
  Country: US (occurrence: US)
  Receive Date: 20240606
  Receipt Date: 20240606
  Transmission Date: 20240716
  Serious: Yes (Death, Hospitalization)
  Sender: FDA-Public Use
  Company Number: US-STRIDES ARCOLAB LIMITED-2024SP006520

PATIENT
  Age: 74 Year
  Sex: Male

DRUGS (5)
  1. FLUCYTOSINE [Suspect]
     Active Substance: FLUCYTOSINE
     Indication: Meningitis cryptococcal
     Dosage: UNK
     Route: 065
  2. AMPHOTERICIN B [Suspect]
     Active Substance: AMPHOTERICIN B
     Indication: Meningitis cryptococcal
     Dosage: UNK (SINGLE HIGH DOSE)
     Route: 065
  3. FLUCONAZOLE [Suspect]
     Active Substance: FLUCONAZOLE
     Indication: Meningitis cryptococcal
     Dosage: UNK
     Route: 065
  4. CARFILZOMIB [Concomitant]
     Active Substance: CARFILZOMIB
     Indication: Light chain disease
     Dosage: UNK
     Route: 065
  5. DEXAMETHASONE [Concomitant]
     Active Substance: DEXAMETHASONE
     Indication: Light chain disease
     Dosage: UNK
     Route: 065

REACTIONS (1)
  - Therapy partial responder [Fatal]
